FAERS Safety Report 20073326 (Version 1)
Quarter: 2021Q4

REPORT INFORMATION
  Report Type: Spontaneous
  Country: HU (occurrence: HU)
  Receive Date: 20211116
  Receipt Date: 20211116
  Transmission Date: 20220303
  Serious: Yes (Other)
  Sender: FDA-Public Use
  Company Number: HU-NOVARTISPH-NVSC2021HU254143

PATIENT
  Age: 50 Year
  Sex: Female

DRUGS (4)
  1. HYRIMOZ [Suspect]
     Active Substance: ADALIMUMAB-ADAZ
     Indication: Psoriasis
     Dosage: UNK
     Route: 065
     Dates: start: 202012, end: 202103
  2. METHOTREXATE [Suspect]
     Active Substance: METHOTREXATE
     Indication: Joint swelling
     Dosage: 20 MG, QW
     Route: 065
  3. METHOTREXATE [Suspect]
     Active Substance: METHOTREXATE
     Indication: Pain
     Dosage: 12.5 MG, QW
     Route: 065
  4. METHOTREXATE [Suspect]
     Active Substance: METHOTREXATE
     Indication: Psoriasis

REACTIONS (12)
  - Renal impairment [Unknown]
  - Glomerular filtration rate decreased [Unknown]
  - Back pain [Recovered/Resolved]
  - Dactylitis [Recovered/Resolved]
  - Enthesopathy [Recovered/Resolved]
  - Cutaneous symptom [Recovered/Resolved]
  - Cutaneous symptom [Recovered/Resolved]
  - Sacroiliitis [Unknown]
  - HLA-B*27 positive [Unknown]
  - C-reactive protein increased [Unknown]
  - Arthropathy [Recovered/Resolved]
  - Drug ineffective [Unknown]

NARRATIVE: CASE EVENT DATE: 20200101
